FAERS Safety Report 20471740 (Version 6)
Quarter: 2023Q1

REPORT INFORMATION
  Report Type: Spontaneous
  Country: US (occurrence: US)
  Receive Date: 20220214
  Receipt Date: 20230302
  Transmission Date: 20230418
  Serious: No
  Sender: FDA-Public Use
  Company Number: US-SA-SAC20220208001093

PATIENT
  Age: 53 Year
  Sex: Female

DRUGS (1)
  1. CAPRELSA [Suspect]
     Active Substance: VANDETANIB
     Indication: Thyroid cancer
     Dosage: 300 MG, QD
     Route: 048
     Dates: start: 20120327

REACTIONS (4)
  - Rash [Unknown]
  - Product use complaint [Unknown]
  - Incorrect dose administered [Unknown]
  - Incorrect dose administered [Unknown]
